FAERS Safety Report 9245865 (Version 5)
Quarter: 2013Q4

REPORT INFORMATION
  Report Type: Spontaneous
  Country: US (occurrence: US)
  Receive Date: 20130422
  Receipt Date: 20131004
  Transmission Date: 20140711
  Serious: Yes (Death, Other)
  Sender: FDA-Public Use
  Company Number: US-JNJFOC-20130411606

PATIENT
  Age: 54 Year
  Sex: Female
  Weight: 75.57 kg

DRUGS (10)
  1. REMICADE [Suspect]
     Indication: CROHN^S DISEASE
     Dosage: STARTED APPROX 15-SEP-2001 AND STOPPED APPROXIMATELY IN 17-MAY-2002.
     Route: 042
     Dates: start: 20010915, end: 20020517
  2. PREDNISONE [Suspect]
     Indication: CROHN^S DISEASE
     Route: 065
     Dates: start: 20010808
  3. METHOTREXATE [Suspect]
     Indication: CROHN^S DISEASE
     Route: 065
  4. METHOTREXATE [Suspect]
     Indication: CROHN^S DISEASE
     Route: 065
     Dates: start: 1998, end: 20041110
  5. TRAZODONE [Concomitant]
     Indication: DEPRESSION
     Route: 065
  6. PREMARIN [Concomitant]
     Indication: HORMONE REPLACEMENT THERAPY
     Dosage: POSSIBLE 17-MAY-2002
     Route: 065
     Dates: end: 20020517
  7. PROGESTERONE [Concomitant]
     Route: 065
  8. PERCOCET [Concomitant]
     Indication: PAIN
     Route: 065
  9. PEPCID AC [Concomitant]
     Route: 065
  10. MULTIVITAMINS [Concomitant]
     Route: 065

REACTIONS (1)
  - Small intestine adenocarcinoma [Fatal]
